FAERS Safety Report 4385764-8 (Version None)
Quarter: 2004Q2

REPORT INFORMATION
  Report Type: 
  Country: None (occurrence: None)
  Receive Date: 20040628
  Receipt Date: 20030929
  Transmission Date: 20050107
  Serious: Yes (Other)
  Sender: FDA-Public Use
  Company Number: US-MERCK-0310USA00068

PATIENT
  Age: 52 Year
  Sex: Female
  Weight: 82 kg

DRUGS (1)
  1. VIOXX [Suspect]
     Indication: PAIN
     Route: 048
     Dates: start: 20000101, end: 20000101

REACTIONS (9)
  - BLOOD CHOLESTEROL INCREASED [None]
  - BREAST DISORDER [None]
  - CHEST PAIN [None]
  - EMOTIONAL DISTRESS [None]
  - GASTRIC DISORDER [None]
  - HEART RATE IRREGULAR [None]
  - HYPERTENSION [None]
  - NERVOUSNESS [None]
  - PEPTIC ULCER [None]
